FAERS Safety Report 25159694 (Version 3)
Quarter: 2025Q2

REPORT INFORMATION
  Report Type: Spontaneous
  Country: FR (occurrence: FR)
  Receive Date: 20250404
  Receipt Date: 20250602
  Transmission Date: 20250716
  Serious: Yes (Hospitalization, Other)
  Sender: BRISTOL-MYERS SQUIBB COMPANY
  Company Number: FR-BRISTOL-MYERS SQUIBB COMPANY-2025-049346

PATIENT
  Age: 93 Year
  Sex: Male
  Weight: 92 kg

DRUGS (3)
  1. ELIQUIS [Suspect]
     Active Substance: APIXABAN
     Indication: Cerebrovascular accident
     Route: 048
  2. ELIQUIS [Suspect]
     Active Substance: APIXABAN
     Route: 048
  3. ELIQUIS [Suspect]
     Active Substance: APIXABAN
     Dates: end: 20250517

REACTIONS (9)
  - Pneumonia [Unknown]
  - Skin discolouration [Recovered/Resolved]
  - Pain in extremity [Unknown]
  - Urinary bladder haemorrhage [Not Recovered/Not Resolved]
  - Post procedural haemorrhage [Unknown]
  - Pneumonitis [Unknown]
  - Bronchial disorder [Unknown]
  - Urinary tract infection [Unknown]
  - Urinary tract obstruction [Unknown]
